FAERS Safety Report 10261551 (Version 1)
Quarter: 2014Q2

REPORT INFORMATION
  Report Type: Report from Study
  Country: BR (occurrence: BR)
  Receive Date: 20140626
  Receipt Date: 20140626
  Transmission Date: 20141212
  Serious: Yes (Death, Hospitalization, Other)
  Sender: FDA-Public Use
  Company Number: PHHY2014BR078610

PATIENT
  Age: 90 Year
  Sex: Female
  Weight: 90 kg

DRUGS (5)
  1. FORASEQ [Suspect]
     Indication: LUNG DISORDER
     Dosage: 2 DF, (1 CAPSULE IN THE MORNING AND AT AFTERNOON)
     Route: 055
  2. PREDNISONE [Concomitant]
     Indication: LUNG DISORDER
     Dosage: UNK UKN, UNK
  3. ALLOPURINOL [Concomitant]
     Indication: DYSURIA
     Dosage: 1 DF, AFTER THE BREAKFAST
  4. TYLENOL [Concomitant]
     Dosage: UNK UKN, UNK
  5. SIMVASTATIN [Concomitant]
     Indication: BLOOD PRESSURE
     Dosage: UNK UKN, UNK

REACTIONS (3)
  - Myocardial infarction [Fatal]
  - Pain [Fatal]
  - Diverticulitis [Unknown]
